FAERS Safety Report 17179243 (Version 1)
Quarter: 2019Q4

REPORT INFORMATION
  Report Type: Spontaneous
  Country: IT (occurrence: IT)
  Receive Date: 20191219
  Receipt Date: 20191219
  Transmission Date: 20200122
  Serious: Yes (Hospitalization)
  Sender: FDA-Public Use
  Company Number: IT-MYLANLABS-2019M1125508

PATIENT
  Age: 78 Year
  Sex: Male

DRUGS (7)
  1. HALCION [Suspect]
     Active Substance: TRIAZOLAM
     Indication: INSOMNIA
     Dosage: 250 UG, 1X/DAY (IN THE EVENING)
     Dates: start: 2005
  2. APROVEL [Concomitant]
     Active Substance: IRBESARTAN
     Indication: HYPERTENSION
     Dosage: 1 DF, DAILY (IN THE EVENING)
     Dates: start: 2000
  3. DAPAROX                            /00830802/ [Concomitant]
     Active Substance: PAROXETINE HYDROCHLORIDE
     Dosage: UNK
     Dates: start: 2017
  4. COUMADIN [Concomitant]
     Active Substance: WARFARIN SODIUM
     Dosage: UNK [VARIABLE DOSAGE (1/2 TABLET TO 3/4)]
     Dates: start: 2006
  5. METFORMIN [Suspect]
     Active Substance: METFORMIN HYDROCHLORIDE
     Indication: TYPE 2 DIABETES MELLITUS
     Dosage: 1 DF, DAILY (IN THE EVENING)
     Dates: start: 2006
  6. SOLOSA [Suspect]
     Active Substance: GLIMEPIRIDE
     Indication: TYPE 2 DIABETES MELLITUS
     Dosage: 0.5 DF, DAILY (IN THE MORNING)
     Dates: start: 2006
  7. GABAPENTIN. [Concomitant]
     Active Substance: GABAPENTIN
     Dosage: UNK
     Dates: start: 2018

REACTIONS (3)
  - Peripheral swelling [Unknown]
  - Hyperkeratosis [Not Recovered/Not Resolved]
  - Neurodermatitis [Not Recovered/Not Resolved]

NARRATIVE: CASE EVENT DATE: 2018
